FAERS Safety Report 24421903 (Version 1)
Quarter: 2024Q4

REPORT INFORMATION
  Report Type: Spontaneous
  Country: US (occurrence: US)
  Receive Date: 20241010
  Receipt Date: 20241010
  Transmission Date: 20250114
  Serious: Yes (Life-Threatening, Other)
  Sender: DR REDDYS
  Company Number: None

PATIENT
  Age: 72 Year
  Sex: Female

DRUGS (4)
  1. AMIODARONE [Suspect]
     Active Substance: AMIODARONE
     Indication: Heart failure with preserved ejection fraction
  2. HYDROCHLOROTHIAZIDE\LOSARTAN [Suspect]
     Active Substance: HYDROCHLOROTHIAZIDE\LOSARTAN
     Indication: Diuretic therapy
  3. DIGOXIN [Suspect]
     Active Substance: DIGOXIN
     Indication: Product used for unknown indication
  4. APIXABAN [Concomitant]
     Active Substance: APIXABAN
     Indication: Product used for unknown indication

REACTIONS (8)
  - Blood potassium abnormal [Recovered/Resolved]
  - Drug interaction [Recovered/Resolved]
  - Acute kidney injury [Unknown]
  - Bradycardia [Recovering/Resolving]
  - Condition aggravated [Recovering/Resolving]
  - Toxicity to various agents [Recovered/Resolved]
  - Atrioventricular block second degree [Recovering/Resolving]
  - Electrocardiogram ST segment depression [Recovered/Resolved]
